FAERS Safety Report 5793630-6 (Version None)
Quarter: 2008Q2

REPORT INFORMATION
  Report Type: 
  Country: None (occurrence: None)
  Receive Date: 20080627
  Receipt Date: 20080619
  Transmission Date: 20081010
  Serious: Yes (Hospitalization)
  Sender: FDA-Public Use
  Company Number: US-JNJFOC-20060601551

PATIENT
  Sex: Male
  Weight: 104.33 kg

DRUGS (6)
  1. TOPAMAX [Suspect]
     Indication: MIGRAINE PROPHYLAXIS
     Route: 048
  2. TOPAMAX [Suspect]
     Indication: CONVULSION
     Route: 048
  3. GLUCOPHAGE [Interacting]
     Indication: DIABETES MELLITUS
     Route: 048
  4. TRILEPTAL [Concomitant]
     Indication: CONVULSION
     Route: 048
  5. ZOCOR [Concomitant]
     Indication: BLOOD CHOLESTEROL INCREASED
     Route: 048
  6. DIOVAN [Concomitant]

REACTIONS (6)
  - DEPRESSION [None]
  - DRUG INTERACTION [None]
  - GALLBLADDER OPERATION [None]
  - HYPERSENSITIVITY [None]
  - MEMORY IMPAIRMENT [None]
  - VISION BLURRED [None]
